FAERS Safety Report 21109982 (Version 2)
Quarter: 2022Q3

REPORT INFORMATION
  Report Type: Spontaneous
  Country: AU (occurrence: AU)
  Receive Date: 20220721
  Receipt Date: 20220802
  Transmission Date: 20221026
  Serious: Yes (Death, Other)
  Sender: FDA-Public Use
  Company Number: AU-Covis Pharma GmbH-2022COV02196

PATIENT
  Age: 74 Year

DRUGS (1)
  1. RILUZOLE [Suspect]
     Active Substance: RILUZOLE
     Indication: Product used for unknown indication
     Route: 065

REACTIONS (5)
  - Motor neurone disease [Fatal]
  - Disease progression [Fatal]
  - Fall [Fatal]
  - Muscular weakness [Fatal]
  - Asthenia [Fatal]
